FAERS Safety Report 4796932-5 (Version None)
Quarter: 2005Q4

REPORT INFORMATION
  Report Type: 
  Country: None (occurrence: None)
  Receive Date: 20051013
  Receipt Date: 20051003
  Transmission Date: 20060501
  Serious: Yes (Hospitalization, Other)
  Sender: FDA-Public Use
  Company Number: US-JNJFOC-20041105895

PATIENT
  Sex: Female
  Weight: 83.92 kg

DRUGS (4)
  1. TOPAMAX [Suspect]
     Route: 048
  2. TOPAMAX [Suspect]
     Route: 048
  3. TOPAMAX [Suspect]
     Route: 048
  4. VITAMINS [Concomitant]

REACTIONS (16)
  - ABDOMINAL PAIN LOWER [None]
  - APHASIA [None]
  - CONVULSION [None]
  - DIARRHOEA [None]
  - DIZZINESS [None]
  - DROP ATTACKS [None]
  - DYSPAREUNIA [None]
  - ESCHERICHIA INFECTION [None]
  - GASTROINTESTINAL HAEMORRHAGE [None]
  - POLLAKIURIA [None]
  - PREMENSTRUAL SYNDROME [None]
  - PYREXIA [None]
  - ROAD TRAFFIC ACCIDENT [None]
  - SHOULDER DEFORMITY [None]
  - UTERINE LEIOMYOMA [None]
  - VAGINAL HAEMORRHAGE [None]
